FAERS Safety Report 23785154 (Version 1)
Quarter: 2024Q2

REPORT INFORMATION
  Report Type: Spontaneous
  Country: US (occurrence: None)
  Receive Date: 20240425
  Receipt Date: 20240425
  Transmission Date: 20240716
  Serious: Yes (Hospitalization)
  Sender: FDA-Public Use
  Company Number: None

PATIENT
  Sex: Female

DRUGS (2)
  1. TEMOZOLOMIDE [Suspect]
     Active Substance: TEMOZOLOMIDE
     Indication: Carcinoid tumour of the small bowel
     Dosage: FREQUENCY : DAILY;?
     Route: 048
     Dates: start: 202403
  2. CAPECITABINE [Suspect]
     Active Substance: CAPECITABINE
     Indication: Carcinoid tumour of the small bowel
     Dosage: OTHER FREQUENCY : BID 14/28 DAYS;?
     Route: 048
     Dates: start: 202403

REACTIONS (1)
  - Nausea [None]
